FAERS Safety Report 7331139-9 (Version None)
Quarter: 2011Q1

REPORT INFORMATION
  Report Type: 
  Country: None (occurrence: None)
  Receive Date: 20110304
  Receipt Date: 20110218
  Transmission Date: 20110831
  Serious: Yes (Hospitalization)
  Sender: FDA-Public Use
  Company Number: DE-RANBAXY-2011RR-41746

PATIENT
  Age: 85 Year
  Sex: Female

DRUGS (6)
  1. GABAPENTIN [Suspect]
     Indication: PAIN
     Dosage: 300 MG, BID
     Route: 048
     Dates: start: 20110112, end: 20110116
  2. INSULIN PROTAPHAN HUMAN [Concomitant]
     Indication: TYPE 2 DIABETES MELLITUS
     Dosage: 6 IU, QD
     Route: 058
  3. QUERTO 25 [Concomitant]
     Indication: HYPERTENSION
     Dosage: 25 MG, BID
     Route: 048
  4. L-THYROXIN 50 [Concomitant]
     Indication: HYPOTHYROIDISM
     Dosage: 50 UG, QD
     Route: 048
  5. INSULIN ACTRAPID HUMAN [Concomitant]
     Indication: TYPE 2 DIABETES MELLITUS
     Dosage: UNK
     Route: 058
  6. TAVANIC [Concomitant]
     Indication: URINARY TRACT INFECTION
     Dosage: UNK

REACTIONS (1)
  - DISTURBANCE IN ATTENTION [None]
